FAERS Safety Report 5195001-2 (Version None)
Quarter: 2006Q4

REPORT INFORMATION
  Report Type: 
  Country: None (occurrence: None)
  Receive Date: 20061229
  Receipt Date: 20061205
  Transmission Date: 20070319
  Serious: Yes (Death, Other)
  Sender: FDA-Public Use
  Company Number: GB-MERCK-0612USA03091

PATIENT
  Age: 56 Year
  Sex: Female

DRUGS (1)
  1. PRIMAXIN [Suspect]
     Indication: PNEUMONIA
     Route: 042

REACTIONS (14)
  - CARDIAC ARREST [None]
  - COMA [None]
  - CORNEAL OEDEMA [None]
  - DRUG INEFFECTIVE [None]
  - ENDOPHTHALMITIS [None]
  - FUNDOSCOPY ABNORMAL [None]
  - GENERAL PHYSICAL HEALTH DETERIORATION [None]
  - HAEMODIALYSIS [None]
  - HYPOPYON [None]
  - MULTI-ORGAN FAILURE [None]
  - OCULAR HYPERAEMIA [None]
  - PUPILLARY DISORDER [None]
  - RENAL FAILURE [None]
  - SERRATIA INFECTION [None]
